FAERS Safety Report 7322402-6 (Version None)
Quarter: 2011Q1

REPORT INFORMATION
  Report Type: 
  Country: None (occurrence: None)
  Receive Date: 20110301
  Receipt Date: 20110222
  Transmission Date: 20110831
  Serious: No
  Sender: FDA-Public Use
  Company Number: US-BIOGENIDEC-2011BI007070

PATIENT
  Sex: Male

DRUGS (1)
  1. TYSABRI [Suspect]
     Indication: MULTIPLE SCLEROSIS
     Route: 042
     Dates: start: 20110211

REACTIONS (5)
  - VISION BLURRED [None]
  - SPEECH DISORDER [None]
  - MUSCLE TIGHTNESS [None]
  - INCREASED UPPER AIRWAY SECRETION [None]
  - ASTHENIA [None]
